FAERS Safety Report 7637010-7 (Version None)
Quarter: 2011Q3

REPORT INFORMATION
  Report Type: 
  Country: None (occurrence: None)
  Receive Date: 20110726
  Receipt Date: 20110720
  Transmission Date: 20111222
  Serious: Yes (Other)
  Sender: FDA-Public Use
  Company Number: JP-ABBOTT-11P-087-0840514-00

PATIENT
  Sex: Female

DRUGS (12)
  1. CLARITHROMYCIN [Suspect]
     Indication: PHARYNGITIS
     Route: 048
     Dates: start: 20110701, end: 20110701
  2. CLINDAMYCIN [Suspect]
     Indication: SINUSITIS
  3. ISEPACIN [Concomitant]
     Indication: PHARYNGITIS
     Route: 042
     Dates: start: 20110701, end: 20110701
  4. ALLEGRA [Concomitant]
     Indication: SINUSITIS
  5. LANSOPRAZOLE [Concomitant]
     Indication: PHARYNGITIS
     Route: 048
     Dates: start: 20110701, end: 20110701
  6. LANSOPRAZOLE [Concomitant]
     Indication: SINUSITIS
  7. MONTELUKAST SODIUM [Concomitant]
     Indication: SINUSITIS
  8. ISEPACIN [Concomitant]
     Indication: SINUSITIS
  9. CLARITHROMYCIN [Suspect]
     Indication: SINUSITIS
  10. ALLEGRA [Concomitant]
     Indication: PHARYNGITIS
     Route: 048
     Dates: start: 20110701, end: 20110701
  11. MONTELUKAST SODIUM [Concomitant]
     Indication: PHARYNGITIS
     Route: 048
     Dates: start: 20110701, end: 20110701
  12. CLINDAMYCIN [Suspect]
     Indication: PHARYNGITIS
     Route: 042
     Dates: start: 20110701, end: 20110701

REACTIONS (2)
  - DYSPNOEA [None]
  - ERYTHEMA [None]
